FAERS Safety Report 7430531-1 (Version None)
Quarter: 2011Q2

REPORT INFORMATION
  Report Type: 
  Country: None (occurrence: None)
  Receive Date: 20110421
  Receipt Date: 20100923
  Transmission Date: 20111010
  Serious: No
  Sender: FDA-Public Use
  Company Number: US-ASTRAZENECA-2010SE44949

PATIENT
  Age: 54 Year
  Sex: Female
  Weight: 103.4 kg

DRUGS (3)
  1. NORVASC [Concomitant]
     Indication: HYPERTENSION
  2. TOPROL-XL [Suspect]
     Indication: HYPERTENSION
     Route: 048
     Dates: start: 19970101
  3. TOPROL-XL [Suspect]
     Dosage: 200 MG
     Route: 048
     Dates: start: 20100901

REACTIONS (4)
  - CHEST DISCOMFORT [None]
  - HYPERTENSION [None]
  - LOW DENSITY LIPOPROTEIN INCREASED [None]
  - WEIGHT INCREASED [None]
